FAERS Safety Report 7787224-0 (Version None)
Quarter: 2011Q3

REPORT INFORMATION
  Report Type: 
  Country: None (occurrence: None)
  Receive Date: 20110927
  Receipt Date: 20110915
  Transmission Date: 20111222
  Serious: Yes (Life-Threatening, Hospitalization)
  Sender: FDA-Public Use
  Company Number: ESP11000104

PATIENT
  Age: 64 Year
  Sex: Female

DRUGS (4)
  1. OMEPRAZOLE [Suspect]
     Indication: HYPERTENSION
     Dosage: 1 UNIT, 1/DAY, ORAL
     Route: 048
     Dates: start: 20110301, end: 20110301
  2. HYDROCHLOROTHIAZIDE [Suspect]
     Dosage: 1 UNIT, 1/DAY, ORAL
     Route: 048
     Dates: start: 20110301, end: 20110301
  3. HIDROFEROL /00591101/ (CALCIFEDIOL) [Concomitant]
  4. ACTONEL [Suspect]
     Indication: HYPERPARATHYROIDISM
     Dosage: 35 MG, 1/WEEK, ORAL
     Route: 048
     Dates: start: 20110301, end: 20110301

REACTIONS (4)
  - HYPOCALCAEMIA [None]
  - HYPOMAGNESAEMIA [None]
  - DRUG INTERACTION [None]
  - HYPOKALAEMIA [None]
